FAERS Safety Report 18168086 (Version 2)
Quarter: 2021Q4

REPORT INFORMATION
  Report Type: Spontaneous
  Country: US (occurrence: US)
  Receive Date: 20200818
  Receipt Date: 20211004
  Transmission Date: 20220303
  Serious: No
  Sender: FDA-Public Use
  Company Number: US-OTSUKA-2020_015951

PATIENT
  Sex: Male

DRUGS (1)
  1. ABILIFY MAINTENA [Suspect]
     Active Substance: ARIPIPRAZOLE
     Indication: Product used for unknown indication
     Dosage: 300 MG, (EVERY 26 DAYS)
     Route: 065

REACTIONS (2)
  - Underdose [Unknown]
  - Intercepted product prescribing error [Unknown]

NARRATIVE: CASE EVENT DATE: 20200701
